FAERS Safety Report 25272579 (Version 2)
Quarter: 2025Q2

REPORT INFORMATION
  Report Type: Report from Study
  Country: US (occurrence: US)
  Receive Date: 20250506
  Receipt Date: 20250529
  Transmission Date: 20250717
  Serious: Yes (Other)
  Sender: UCB
  Company Number: US-UCBSA-2025026149

PATIENT
  Age: 15 Year
  Sex: Female
  Weight: 45.3 kg

DRUGS (1)
  1. FINTEPLA [Suspect]
     Active Substance: FENFLURAMINE
     Indication: Seizure
     Dates: end: 202502

REACTIONS (1)
  - Aortic valve incompetence [Not Recovered/Not Resolved]

NARRATIVE: CASE EVENT DATE: 20250426
